FAERS Safety Report 7904714-8 (Version None)
Quarter: 2011Q4

REPORT INFORMATION
  Report Type: 
  Country: None (occurrence: None)
  Receive Date: 20111109
  Receipt Date: 20111031
  Transmission Date: 20120403
  Serious: Yes (Other)
  Sender: FDA-Public Use
  Company Number: MY-GLAXOSMITHKLINE-B0761447A

PATIENT
  Sex: Male

DRUGS (4)
  1. ZINACEF [Suspect]
     Indication: PNEUMONIA
     Dosage: 200MG PER DAY
     Route: 042
     Dates: start: 20110927, end: 20110927
  2. HYDROCORTISONE [Concomitant]
     Route: 042
     Dates: start: 20110929
  3. VENTOLIN [Concomitant]
     Route: 065
     Dates: start: 20110928
  4. ATROVENT [Concomitant]
     Route: 065
     Dates: start: 20110928

REACTIONS (3)
  - CHILLS [None]
  - TACHYCARDIA [None]
  - PYREXIA [None]
